FAERS Safety Report 9080216 (Version 2)
Quarter: 2014Q2

REPORT INFORMATION
  Report Type: Spontaneous
  Country: KR (occurrence: KR)
  Receive Date: 20130218
  Receipt Date: 20140626
  Transmission Date: 20141212
  Serious: Yes (Hospitalization)
  Sender: FDA-Public Use
  Company Number: PHHY2013KR013592

PATIENT
  Age: 73 Year
  Sex: Male

DRUGS (1)
  1. WARFARIN [Suspect]

REACTIONS (6)
  - Pancreatic cyst rupture [Recovered/Resolved]
  - Gastric ulcer [Recovered/Resolved]
  - Blood pressure systolic decreased [Recovering/Resolving]
  - Gastrointestinal haemorrhage [Recovered/Resolved]
  - Haematemesis [Recovering/Resolving]
  - Haemoglobin decreased [Recovering/Resolving]
